FAERS Safety Report 5583903-4 (Version None)
Quarter: 2008Q1

REPORT INFORMATION
  Report Type: 
  Country: None (occurrence: None)
  Receive Date: 20080102
  Receipt Date: 20080102
  Transmission Date: 20080703
  Serious: Yes (Other)
  Sender: FDA-Public Use
  Company Number: None

PATIENT
  Age: 63 Year
  Sex: Male
  Weight: 106.5953 kg

DRUGS (2)
  1. CIPRO [Suspect]
     Indication: PROSTATITIS
     Dosage: DAILY PO
     Route: 048
     Dates: start: 20071015, end: 20071204
  2. LEVAQUIN [Suspect]
     Indication: PROSTATITIS
     Dosage: DAILY PO
     Route: 048
     Dates: start: 20071204, end: 20071219

REACTIONS (6)
  - ARTHRALGIA [None]
  - ARTHRITIS [None]
  - DRUG EFFECT DECREASED [None]
  - JOINT SWELLING [None]
  - OEDEMA PERIPHERAL [None]
  - PAIN IN EXTREMITY [None]
